FAERS Safety Report 15253784 (Version 1)
Quarter: 2018Q3

REPORT INFORMATION
  Report Type: Report from Study
  Country: US (occurrence: DE)
  Receive Date: 20180808
  Receipt Date: 20180808
  Transmission Date: 20181010
  Serious: Yes (Life-Threatening, Hospitalization, Other)
  Sender: FDA-Public Use
  Company Number: DE-TEVA-2018-DE-936815

PATIENT
  Age: 63 Year
  Sex: Female
  Weight: 70.2 kg

DRUGS (18)
  1. DEXAMETHASONE. [Concomitant]
     Active Substance: DEXAMETHASONE
     Dosage: 2 MG,BID
     Route: 048
     Dates: start: 20171130, end: 20171203
  2. PANTOPRAZOLE [Concomitant]
     Active Substance: PANTOPRAZOLE
     Indication: PROPHYLAXIS
     Dosage: 40 MILLIGRAM DAILY; 20 MG, BID
     Route: 048
     Dates: start: 20171106
  3. DEXAMETHASONE. [Concomitant]
     Active Substance: DEXAMETHASONE
     Indication: NAUSEA
     Dosage: 4 MILLIGRAM DAILY; 4 MG, QD
     Route: 048
     Dates: start: 20171204, end: 20171207
  4. DEXAMETHASONE. [Concomitant]
     Active Substance: DEXAMETHASONE
     Dosage: 4 MILLIGRAM DAILY; 2 MG , BID
     Route: 048
     Dates: start: 20171212
  5. VIGAMOX [Concomitant]
     Active Substance: MOXIFLOXACIN HYDROCHLORIDE
     Indication: EYELID EROSION
     Dosage: UNK
     Route: 065
  6. ARTELAC [Concomitant]
     Active Substance: HYPROMELLOSES
     Indication: EYE PRURITUS
     Dosage: 1 DROP, (7?8X PER DAY)
     Route: 061
     Dates: start: 20171201
  7. DEXAMETHASONE. [Concomitant]
     Active Substance: DEXAMETHASONE
     Indication: HEADACHE
     Dosage: 1 MILLIGRAM DAILY; 1 MG, QD
     Route: 048
     Dates: start: 20171212
  8. DEXAMETHASONE. [Concomitant]
     Active Substance: DEXAMETHASONE
     Dosage: 2 MG,QD
     Route: 048
     Dates: start: 20171130, end: 20171203
  9. VIGAMOX [Concomitant]
     Active Substance: MOXIFLOXACIN HYDROCHLORIDE
     Dosage: 1 GTT, QID
     Route: 047
     Dates: start: 20171209, end: 20171214
  10. AURORIX [Concomitant]
     Active Substance: MOCLOBEMIDE
     Indication: DEPRESSION
     Dosage: 300 MILLIGRAM DAILY; 300 MG, QD
     Route: 048
     Dates: start: 2000
  11. DEXAMETHASONE. [Concomitant]
     Active Substance: DEXAMETHASONE
     Dosage: 4 MILLIGRAM DAILY; 2MG, BID
     Route: 048
     Dates: start: 20171204, end: 20171207
  12. DEXAEDO [Concomitant]
     Dosage: 3 GTT DAILY; WEEK 5 DAY 1 (1DROP, 3 IN 1 D)
     Route: 047
     Dates: start: 20171205, end: 20171209
  13. SODIUM HYALURONATE [Concomitant]
     Active Substance: HYALURONATE SODIUM
     Indication: EYELID EROSION
     Dosage: 1 DROP, QH
     Route: 065
     Dates: start: 20171209, end: 20171214
  14. DEXAMETHASONE. [Concomitant]
     Active Substance: DEXAMETHASONE
     Indication: HEMIPARESIS
     Dosage: 6 MILLIGRAM DAILY; 2 MD,TID
     Route: 048
     Dates: start: 20171208, end: 20171211
  15. AURORIX [Concomitant]
     Active Substance: MOCLOBEMIDE
     Dosage: 150 MILLIGRAM DAILY; 150 MG, QD
     Route: 048
     Dates: start: 2000
  16. AMITRIPTYLIN [Concomitant]
     Active Substance: AMITRIPTYLINE
     Indication: DEPRESSION
     Dosage: 35 MILLIGRAM DAILY; 35 MG, QD
     Route: 048
     Dates: start: 2000
  17. TEMOZOLOMIDE. [Suspect]
     Active Substance: TEMOZOLOMIDE
     Indication: GLIOBLASTOMA
     Dosage: 75 MG/M2, DAYS 1? 5 OF EACH 28?DAY CYCLE
     Route: 048
     Dates: start: 20171109
  18. THIORIDAZINE [Concomitant]
     Active Substance: THIORIDAZINE
     Indication: DEPRESSION
     Dosage: 25 MG, PRN
     Route: 048
     Dates: start: 2000

REACTIONS (2)
  - Deep vein thrombosis [Not Recovered/Not Resolved]
  - Thrombocytopenia [Recovered/Resolved]

NARRATIVE: CASE EVENT DATE: 20171215
